FAERS Safety Report 17052473 (Version 1)
Quarter: 2019Q4

REPORT INFORMATION
  Report Type: Spontaneous
  Country: TW (occurrence: TW)
  Receive Date: 20191120
  Receipt Date: 20191120
  Transmission Date: 20200122
  Serious: Yes (Hospitalization, Other)
  Sender: FDA-Public Use
  Company Number: TW-PFIZER INC-2018523523

PATIENT
  Age: 33 Year
  Sex: Male

DRUGS (7)
  1. SUTENT [Suspect]
     Active Substance: SUNITINIB MALATE
     Dosage: 37.5 MG, CYCLIC (DAILY, ONE WEEK ON AND ONE WEEK OFF)
     Route: 048
  2. SUTENT [Suspect]
     Active Substance: SUNITINIB MALATE
     Dosage: 50 MG, CYCLIC (4 CAPSULES PER DAY; ONE WEEK ON AND ONE WEEK OFF)
     Route: 048
     Dates: start: 20190220, end: 2019
  3. SUTENT [Suspect]
     Active Substance: SUNITINIB MALATE
     Dosage: 8 DF, 1X/DAY
     Route: 048
     Dates: start: 201909, end: 2019
  4. SUTENT [Suspect]
     Active Substance: SUNITINIB MALATE
     Indication: METASTATIC RENAL CELL CARCINOMA
     Dosage: 50 MG, CYCLIC (4 CAPSULES PER DAY; ONE WEEK ON AND ONE WEEK OFF)
     Route: 048
     Dates: start: 20181217
  5. SUTENT [Suspect]
     Active Substance: SUNITINIB MALATE
     Dosage: 12 DF, 1X/DAY
     Route: 048
     Dates: start: 20191002, end: 20191004
  6. SUTENT [Suspect]
     Active Substance: SUNITINIB MALATE
     Dosage: 4 DF, 1X/DAY
     Route: 048
     Dates: start: 20190912, end: 201909
  7. SUTENT [Suspect]
     Active Substance: SUNITINIB MALATE
     Dosage: 50 MG, CYCLIC (4 CAPSULES PER DAY; 3 DAYS ON AND 4 DAYS OFF)
     Route: 048
     Dates: start: 20190428, end: 20190503

REACTIONS (9)
  - Fatigue [Unknown]
  - Palmar-plantar erythrodysaesthesia syndrome [Unknown]
  - Discomfort [Unknown]
  - Pneumonia [Recovering/Resolving]
  - Pain [Unknown]
  - Blood pressure increased [Recovered/Resolved]
  - Neoplasm progression [Unknown]
  - Proctalgia [Recovering/Resolving]
  - Abdominal discomfort [Unknown]

NARRATIVE: CASE EVENT DATE: 201901
